FAERS Safety Report 6887144-X (Version None)
Quarter: 2010Q3

REPORT INFORMATION
  Report Type: 
  Country: None (occurrence: None)
  Receive Date: 20100730
  Receipt Date: 20100722
  Transmission Date: 20110219
  Serious: Yes (Other)
  Sender: FDA-Public Use
  Company Number: FR-PFIZER INC-2010091557

PATIENT
  Age: 59 Year
  Sex: Male

DRUGS (10)
  1. LYRICA [Suspect]
     Dosage: UNK
     Route: 048
     Dates: start: 20100426, end: 20100617
  2. TAHOR [Suspect]
     Dosage: UNK
     Route: 048
     Dates: start: 20100427, end: 20100617
  3. AMOXICILLIN [Suspect]
     Indication: SKIN ULCER
     Dosage: UNK
     Route: 048
     Dates: start: 20100427, end: 20100617
  4. AUGMENTIN '125' [Suspect]
     Indication: SKIN ULCER
     Dosage: UNK
     Route: 048
     Dates: start: 20100427, end: 20100617
  5. LEVOFLOXACIN [Suspect]
     Indication: SKIN ULCER
     Dosage: UNK
     Route: 048
     Dates: start: 20100428, end: 20100617
  6. FONZYLANE [Suspect]
     Dosage: UNK
     Route: 048
     Dates: end: 20100617
  7. RABEPRAZOLE SODIUM [Suspect]
     Dosage: UNK
     Route: 048
     Dates: start: 20100527, end: 20100617
  8. PLAVIX [Concomitant]
  9. LANTUS [Concomitant]
  10. NOVORAPID [Concomitant]

REACTIONS (4)
  - ALANINE AMINOTRANSFERASE INCREASED [None]
  - ASPARTATE AMINOTRANSFERASE INCREASED [None]
  - BLOOD ALKALINE PHOSPHATASE INCREASED [None]
  - GAMMA-GLUTAMYLTRANSFERASE INCREASED [None]
